FAERS Safety Report 9472705 (Version 1)
Quarter: 2013Q3

REPORT INFORMATION
  Report Type: Spontaneous
  Country: IN (occurrence: IN)
  Receive Date: 20130823
  Receipt Date: 20130823
  Transmission Date: 20140515
  Serious: Yes (Disabling)
  Sender: FDA-Public Use
  Company Number: IN-MYLANLABS-2013S1018077

PATIENT
  Age: 56 Year
  Sex: Male

DRUGS (1)
  1. SODIUM VALPROATE [Suspect]
     Indication: GRAND MAL CONVULSION
     Route: 065

REACTIONS (4)
  - Gaze palsy [Recovering/Resolving]
  - Parkinsonism [Recovering/Resolving]
  - Hyperammonaemia [Recovering/Resolving]
  - Toxicity to various agents [Recovering/Resolving]
